FAERS Safety Report 10912820 (Version 1)
Quarter: 2015Q1

REPORT INFORMATION
  Report Type: Spontaneous
  Country: US (occurrence: None)
  Receive Date: 20150310
  Receipt Date: 20150310
  Transmission Date: 20150721
  Serious: No
  Sender: FDA-Public Use
  Company Number: None

PATIENT
  Age: 59 Year
  Sex: Male
  Weight: 69.26 kg

DRUGS (8)
  1. SOFOSBUVIR 400 MG [Suspect]
     Active Substance: SOFOSBUVIR
     Indication: HEPATITIS C
     Route: 048
     Dates: start: 20140904, end: 20141212
  2. SILDENAFIL. [Concomitant]
     Active Substance: SILDENAFIL
  3. THIAMINE [Concomitant]
     Active Substance: THIAMINE
  4. TRAMADOL [Concomitant]
     Active Substance: TRAMADOL
  5. TREPROSTIN [Concomitant]
  6. ZINC [Concomitant]
     Active Substance: ZINC\ZINC CHLORIDE
  7. TRAZODONE [Concomitant]
     Active Substance: TRAZODONE HYDROCHLORIDE
  8. RIBAVIRIN 1000 MG [Suspect]
     Active Substance: RIBAVIRIN
     Indication: HEPATITIS C
     Route: 048
     Dates: start: 20140904, end: 20141212

REACTIONS (5)
  - Peritoneal haemorrhage [None]
  - Hypovolaemia [None]
  - Hyperhidrosis [None]
  - Hypotension [None]
  - Nausea [None]

NARRATIVE: CASE EVENT DATE: 20141114
